FAERS Safety Report 6938455-0 (Version None)
Quarter: 2010Q3

REPORT INFORMATION
  Report Type: 
  Country: None (occurrence: None)
  Receive Date: 20100824
  Receipt Date: 20100818
  Transmission Date: 20110219
  Serious: Yes (Hospitalization)
  Sender: FDA-Public Use
  Company Number: US-BRISTOL-MYERS SQUIBB COMPANY-15246564

PATIENT
  Age: 60 Year
  Sex: Male
  Weight: 109 kg

DRUGS (3)
  1. TAXOL [Suspect]
     Indication: NON-SMALL CELL LUNG CANCER
     Dosage: LAST DOSE ADMINISTRATED:9AUG10
     Dates: start: 20100628
  2. CARBOPLATIN [Suspect]
     Indication: NON-SMALL CELL LUNG CANCER
     Dosage: LAST DOSE ADMINISTRATED:9AUG10
     Dates: start: 20100628
  3. RADIATION THERAPY [Suspect]
     Indication: NON-SMALL CELL LUNG CANCER
     Dosage: LAST DOSE ADMINISTRATED:16AUG10 1DF:70 GY NO.OF .FRACTIONS:35.NO OF ELAPSED DAYS:49 FOR 7.5 WEEKS
     Dates: start: 20100628

REACTIONS (5)
  - CHILLS [None]
  - LEUKOPENIA [None]
  - OESOPHAGEAL PAIN [None]
  - PYREXIA [None]
  - RENAL FAILURE ACUTE [None]
